FAERS Safety Report 12210672 (Version 1)
Quarter: 2016Q1

REPORT INFORMATION
  Report Type: Spontaneous
  Country: US (occurrence: US)
  Receive Date: 20160325
  Receipt Date: 20160325
  Transmission Date: 20160526
  Serious: Yes (Other)
  Sender: FDA-Public Use
  Company Number: US-PROCTER_AND_GAMBLE-GS16032723

PATIENT
  Age: 10 Year
  Sex: Male

DRUGS (1)
  1. CREST PRO-HEALTH (STANNOUS FLUORIDE) [Suspect]
     Active Substance: STANNOUS FLUORIDE
     Dosage: JUST A DAB
     Route: 002
     Dates: end: 20160307

REACTIONS (4)
  - Vomiting [Recovered/Resolved]
  - Nausea [Recovered/Resolved]
  - Loss of consciousness [Recovered/Resolved]
  - Product packaging issue [Unknown]

NARRATIVE: CASE EVENT DATE: 20160208
